FAERS Safety Report 6170721-1 (Version None)
Quarter: 2009Q2

REPORT INFORMATION
  Report Type: 
  Country: None (occurrence: None)
  Receive Date: 20090428
  Receipt Date: 20090416
  Transmission Date: 20091009
  Serious: Yes (Other)
  Sender: FDA-Public Use
  Company Number: US-JNJCH-2009010746

PATIENT
  Age: 59 Year
  Sex: Male
  Weight: 88.5 kg

DRUGS (1)
  1. LISTERINE TOOTH DEFENSE [Suspect]
     Indication: DENTAL DISORDER PROPHYLAXIS
     Dosage: TEXT:CAPFUL ONCE A DAY
     Route: 048
     Dates: start: 20090301, end: 20090407

REACTIONS (2)
  - ENDODONTIC PROCEDURE [None]
  - TOOTH LOSS [None]
